FAERS Safety Report 4375302-8 (Version None)
Quarter: 2004Q2

REPORT INFORMATION
  Report Type: 
  Country: None (occurrence: None)
  Receive Date: 20040607
  Receipt Date: 20030820
  Transmission Date: 20050107
  Serious: Yes (Other)
  Sender: FDA-Public Use
  Company Number: 345238

PATIENT
  Age: 22 Year
  Sex: Male

DRUGS (2)
  1. ACCUTANE [Suspect]
     Indication: ACNE
     Dosage: ORAL
     Route: 048
     Dates: start: 20021215, end: 20030615
  2. ASASOL (MESALAMINE) [Concomitant]

REACTIONS (4)
  - ADVERSE EVENT [None]
  - FIBULA FRACTURE [None]
  - MOOD ALTERED [None]
  - TIBIA FRACTURE [None]
